FAERS Safety Report 20747141 (Version 1)
Quarter: 2022Q2

REPORT INFORMATION
  Report Type: Spontaneous
  Country: US (occurrence: US)
  Receive Date: 20220425
  Receipt Date: 20220425
  Transmission Date: 20220721
  Serious: No
  Sender: FDA-Public Use
  Company Number: US-PFIZER INC-202100951739

PATIENT
  Age: 64 Year
  Sex: Female
  Weight: 54.43 kg

DRUGS (5)
  1. CELECOXIB [Suspect]
     Active Substance: CELECOXIB
     Indication: Arthritis
     Dosage: 200 MG, 1X/DAY
     Route: 048
  2. CELECOXIB [Suspect]
     Active Substance: CELECOXIB
     Indication: Intervertebral disc degeneration
  3. CELECOXIB [Suspect]
     Active Substance: CELECOXIB
     Indication: Temporomandibular joint syndrome
  4. CELECOXIB [Suspect]
     Active Substance: CELECOXIB
     Indication: Ear infection
  5. CELECOXIB [Suspect]
     Active Substance: CELECOXIB
     Indication: Ear swelling

REACTIONS (1)
  - Drug ineffective [Unknown]
